FAERS Safety Report 24874600 (Version 3)
Quarter: 2025Q3

REPORT INFORMATION
  Report Type: Spontaneous
  Country: EU (occurrence: EU)
  Receive Date: 20250122
  Receipt Date: 20250809
  Transmission Date: 20251021
  Serious: Yes (Hospitalization, Other)
  Sender: ALEXION PHARMACEUTICALS
  Company Number: EU-SA-2024SA382060

PATIENT
  Age: 5 Month
  Sex: Male
  Weight: 9 kg

DRUGS (1)
  1. NIRSEVIMAB [Suspect]
     Active Substance: NIRSEVIMAB
     Route: 065
     Dates: start: 20240919, end: 20240919

REACTIONS (1)
  - Respiratory syncytial virus bronchiolitis [Recovering/Resolving]

NARRATIVE: CASE EVENT DATE: 20241223
